FAERS Safety Report 7055415-2 (Version None)
Quarter: 2010Q4

REPORT INFORMATION
  Report Type: 
  Country: None (occurrence: None)
  Receive Date: 20101021
  Receipt Date: 20090629
  Transmission Date: 20110411
  Serious: Yes (Hospitalization)
  Sender: FDA-Public Use
  Company Number: JP-PFIZER INC-2009213027

PATIENT
  Age: 75 Year
  Sex: Male
  Weight: 67 kg

DRUGS (9)
  1. SUNITINIB MALATE [Suspect]
     Indication: HEPATIC NEOPLASM MALIGNANT
     Dosage: 37.5 MG, 1X/DAY
     Dates: start: 20090424, end: 20090615
  2. GLYBURIDE [Concomitant]
     Indication: HYPERGLYCAEMIA
     Dosage: 1 DF, 1X/DAY
     Route: 048
     Dates: start: 20020101, end: 20090508
  3. DIOVAN [Concomitant]
     Indication: HYPERTENSION
     Dosage: 1 DF, 1X/DAY
     Route: 048
     Dates: start: 20020101
  4. AMLODIPINE BESYLATE [Concomitant]
     Indication: HYPERTENSION
     Dosage: UNK
     Dates: start: 20020101
  5. BASEN [Concomitant]
     Indication: HYPERGLYCAEMIA
     Dosage: 1 DF, 3X/DAY
     Route: 048
     Dates: start: 20020101, end: 20090508
  6. MYSLEE [Concomitant]
     Indication: INSOMNIA
     Dosage: 1 DF, 1X/DAY
     Dates: start: 20020101
  7. ENTECAVIR [Concomitant]
     Dosage: UNK
     Dates: start: 20090328
  8. KERATINAMIN [Concomitant]
     Dosage: UNK
     Route: 061
     Dates: start: 20090423
  9. LAXOBERON [Concomitant]
     Indication: CONSTIPATION
     Dosage: 2 DF, AS NEEDED
     Route: 048
     Dates: start: 20090423, end: 20090508

REACTIONS (3)
  - ASCITES [None]
  - ENTERITIS [None]
  - PLATELET COUNT DECREASED [None]
